FAERS Safety Report 19581636 (Version 3)
Quarter: 2021Q3

REPORT INFORMATION
  Report Type: Other
  Country: US (occurrence: US)
  Receive Date: 20210720
  Receipt Date: 20210726
  Transmission Date: 20211014
  Serious: Yes (Other)
  Sender: FDA-Public Use
  Company Number: US-ROCHE-2362254

PATIENT
  Sex: Male
  Weight: 40.3 kg

DRUGS (24)
  1. DOXEPIN [Concomitant]
     Active Substance: DOXEPIN
     Dosage: IN AM
  2. BENADRYL [Concomitant]
     Active Substance: DIPHENHYDRAMINE HYDROCHLORIDE
  3. TYNELOL [Concomitant]
     Active Substance: ACETAMINOPHEN
     Route: 048
  4. TENEX [Concomitant]
     Active Substance: GUANFACINE HYDROCHLORIDE
  5. XOLAIR [Suspect]
     Active Substance: OMALIZUMAB
     Dosage: MOST RESENT DOSE OF XOLAIR INJECTION: 29/JAN/2019,
     Route: 058
     Dates: start: 202002
  6. EPIPEN [Concomitant]
     Active Substance: EPINEPHRINE
  7. XOLAIR [Suspect]
     Active Substance: OMALIZUMAB
  8. ZYRTEC (UNITED STATES) [Concomitant]
     Dosage: IN AM(MORNING)
  9. SINGULAIR [Concomitant]
     Active Substance: MONTELUKAST SODIUM
     Dosage: IN PM
  10. GASTROCROM [Concomitant]
     Active Substance: CROMOLYN SODIUM
  11. XOLAIR [Suspect]
     Active Substance: OMALIZUMAB
  12. XOLAIR [Suspect]
     Active Substance: OMALIZUMAB
     Indication: IDIOPATHIC URTICARIA
     Route: 058
  13. KETOTIFEN [Concomitant]
     Active Substance: KETOTIFEN
     Route: 048
  14. PEPCID [Concomitant]
     Active Substance: FAMOTIDINE
  15. NEURONTIN [Concomitant]
     Active Substance: GABAPENTIN
  16. XOLAIR [Suspect]
     Active Substance: OMALIZUMAB
  17. CIMETIDINE [Concomitant]
     Active Substance: CIMETIDINE
     Dosage: IN AM
  18. THORAZINE [Concomitant]
     Active Substance: CHLORPROMAZINE
  19. FLONASE [Concomitant]
     Active Substance: FLUTICASONE PROPIONATE
     Dosage: 50MCG
  20. XOLAIR [Suspect]
     Active Substance: OMALIZUMAB
     Indication: MASTOCYTOSIS
     Dosage: CHANGE IN MEDICATION: 300 MG EVERY 2 WEEKS?ANTICIPATED DOT: 01/JUL/2019?LAST DOI: 10/JUN/2019
     Route: 058
  21. XOLAIR [Suspect]
     Active Substance: OMALIZUMAB
  22. XOLAIR [Suspect]
     Active Substance: OMALIZUMAB
  23. XOLAIR [Suspect]
     Active Substance: OMALIZUMAB
  24. BEANO [Concomitant]
     Active Substance: ASPERGILLUS NIGER .ALPHA.-GALACTOSIDASE

REACTIONS (5)
  - Off label use [Unknown]
  - Mast cell activation syndrome [Unknown]
  - Insomnia [Unknown]
  - Overweight [Unknown]
  - Anaphylactic reaction [Unknown]
